FAERS Safety Report 6679053-6 (Version None)
Quarter: 2010Q2

REPORT INFORMATION
  Report Type: 
  Country: None (occurrence: None)
  Receive Date: 20100413
  Receipt Date: 20100402
  Transmission Date: 20101027
  Serious: Yes (Hospitalization, Other)
  Sender: FDA-Public Use
  Company Number: PHHY2010NL20497

PATIENT
  Sex: Male

DRUGS (10)
  1. DIOVAN [Suspect]
     Dosage: 80 MG, ONCE DAILY
     Dates: start: 20080401
  2. DIOVAN [Suspect]
     Dosage: 40 MG, BID
  3. EZETROL [Concomitant]
  4. METFORMIN HCL [Concomitant]
  5. CARVEDILOL [Concomitant]
  6. ACENOCOUMAROL [Concomitant]
  7. BUMETANIDE [Concomitant]
  8. DIGOXIN [Concomitant]
  9. URSACOL [Concomitant]
  10. VITAMIN C AND E [Concomitant]

REACTIONS (5)
  - DIABETES MELLITUS [None]
  - DIZZINESS [None]
  - FALL [None]
  - HEAD DISCOMFORT [None]
  - HEPATIC CIRRHOSIS [None]
